FAERS Safety Report 19768709 (Version 2)
Quarter: 2021Q3

REPORT INFORMATION
  Report Type: Spontaneous
  Country: US (occurrence: US)
  Receive Date: 20210831
  Receipt Date: 20210930
  Transmission Date: 20211014
  Serious: Yes (Hospitalization)
  Sender: FDA-Public Use
  Company Number: US-ELI_LILLY_AND_COMPANY-US202108008702

PATIENT
  Sex: Female
  Weight: 71.7 kg

DRUGS (3)
  1. RETEVMO [Suspect]
     Active Substance: SELPERCATINIB
     Indication: NON-SMALL CELL LUNG CANCER METASTATIC
     Dosage: 160 MG, BID
     Route: 048
     Dates: start: 20210727
  2. COMPAZINE [Concomitant]
     Active Substance: PROCHLORPERAZINE MALEATE
     Indication: NAUSEA
  3. RETEVMO [Suspect]
     Active Substance: SELPERCATINIB
     Dosage: UNK UNK, UNKNOWN
     Route: 048
     Dates: end: 20210818

REACTIONS (3)
  - Febrile neutropenia [Recovered/Resolved]
  - Neutropenia [Recovered/Resolved]
  - Systemic inflammatory response syndrome [Recovered/Resolved]
